FAERS Safety Report 6089502-2 (Version None)
Quarter: 2009Q1

REPORT INFORMATION
  Report Type: 
  Country: None (occurrence: None)
  Receive Date: 20090224
  Receipt Date: 20090213
  Transmission Date: 20090719
  Serious: Yes (Other)
  Sender: FDA-Public Use
  Company Number: US-BAXTER-2009BH002572

PATIENT
  Age: 19 Year
  Sex: Male

DRUGS (1)
  1. ADVATE [Suspect]
     Indication: HAEMOPHILIA
     Route: 042

REACTIONS (7)
  - DYSPNOEA [None]
  - FATIGUE [None]
  - FLUSHING [None]
  - LETHARGY [None]
  - NAUSEA [None]
  - PAROSMIA [None]
  - VOMITING [None]
